FAERS Safety Report 5526441-7 (Version None)
Quarter: 2007Q4

REPORT INFORMATION
  Report Type: 
  Country: None (occurrence: None)
  Receive Date: 20071121
  Receipt Date: 20071121
  Transmission Date: 20080405
  Serious: Yes (Death)
  Sender: FDA-Public Use
  Company Number: None

PATIENT
  Age: 38 Year
  Sex: Female
  Weight: 74.3 kg

DRUGS (2)
  1. CLOFARABINE GENZYME [Suspect]
     Indication: ACUTE LYMPHOCYTIC LEUKAEMIA
     Dosage: 30 MG/M2 1XQD/5DAYS IV
     Route: 042
     Dates: start: 20071107, end: 20071111
  2. MELPHALAN [Concomitant]

REACTIONS (12)
  - ANURIA [None]
  - BACTERIA STOOL IDENTIFIED [None]
  - BLOOD CULTURE POSITIVE [None]
  - CAECITIS [None]
  - DIALYSIS [None]
  - HYPOTENSION [None]
  - MENTAL STATUS CHANGES [None]
  - MUCOSAL INFLAMMATION [None]
  - NEUTROPENIC COLITIS [None]
  - PROTEUS INFECTION [None]
  - PYREXIA [None]
  - RESPIRATORY FAILURE [None]
